FAERS Safety Report 4548132-1 (Version None)
Quarter: 2005Q1

REPORT INFORMATION
  Report Type: 
  Country: None (occurrence: None)
  Receive Date: 20050110
  Receipt Date: 20050103
  Transmission Date: 20050727
  Serious: Yes (Death, Hospitalization)
  Sender: FDA-Public Use
  Company Number: US-JNJFOC-20040902783

PATIENT
  Sex: Female
  Weight: 55.79 kg

DRUGS (1)
  1. REMINYL [Suspect]
     Route: 049

REACTIONS (1)
  - ACUTE MYOCARDIAL INFARCTION [None]
